FAERS Safety Report 24077937 (Version 1)
Quarter: 2024Q3

REPORT INFORMATION
  Report Type: Report from Study
  Country: US (occurrence: US)
  Receive Date: 20240711
  Receipt Date: 20240711
  Transmission Date: 20241017
  Serious: Yes (Hospitalization, Other)
  Sender: ROCHE
  Company Number: US-ROCHE-10000018891

PATIENT
  Age: 31 Year
  Sex: Female
  Weight: 95.25 kg

DRUGS (20)
  1. XOLAIR [Suspect]
     Active Substance: OMALIZUMAB
     Indication: Idiopathic urticaria
     Dosage: ONE INJECTION AT THE BACK OF EACH ARM
     Route: 058
     Dates: start: 202309, end: 202311
  2. XOLAIR [Suspect]
     Active Substance: OMALIZUMAB
     Dosage: ONE INJECTION AT THE BACK OF EACH ARM
     Route: 058
     Dates: start: 202309, end: 202311
  3. LAMOTRIGINE [Concomitant]
     Active Substance: LAMOTRIGINE
     Indication: Anxiety
     Route: 048
     Dates: start: 202011
  4. LAMOTRIGINE [Concomitant]
     Active Substance: LAMOTRIGINE
     Indication: Depression
  5. WELLBUTRIN [Concomitant]
     Active Substance: BUPROPION HYDROCHLORIDE
     Indication: Anxiety
     Route: 048
     Dates: start: 2023
  6. WELLBUTRIN [Concomitant]
     Active Substance: BUPROPION HYDROCHLORIDE
     Indication: Depression
  7. DULOXETINE [Concomitant]
     Active Substance: DULOXETINE
     Indication: Pain
     Route: 048
     Dates: start: 202206
  8. CORLANOR [Concomitant]
     Active Substance: IVABRADINE HYDROCHLORIDE
     Indication: Postural orthostatic tachycardia syndrome
     Route: 048
     Dates: start: 202404
  9. MAGNESIUM OXIDE [Concomitant]
     Active Substance: MAGNESIUM OXIDE
     Indication: Impaired gastric emptying
     Route: 048
     Dates: start: 2014
  10. OMEPRAZOLE [Concomitant]
     Active Substance: OMEPRAZOLE
     Indication: Hiatus hernia
     Route: 048
     Dates: start: 202404
  11. OMEPRAZOLE [Concomitant]
     Active Substance: OMEPRAZOLE
     Indication: Impaired gastric emptying
  12. SODIUM CHLORIDE [Concomitant]
     Active Substance: SODIUM CHLORIDE
     Indication: Postural orthostatic tachycardia syndrome
     Route: 048
     Dates: start: 202404
  13. GABAPENTIN [Concomitant]
     Active Substance: GABAPENTIN
     Indication: Pain
     Route: 048
     Dates: start: 202405
  14. RITALIN [Concomitant]
     Active Substance: METHYLPHENIDATE HYDROCHLORIDE
     Indication: Pain
     Route: 048
     Dates: start: 202406
  15. VITAMIN D3 [Concomitant]
     Active Substance: CHOLECALCIFEROL
     Indication: Vitamin D deficiency
     Dosage: TAKES 2 PILLS ONCE A DAY
     Route: 048
     Dates: start: 2022
  16. EPINEPHRINE [Concomitant]
     Active Substance: EPINEPHRINE
     Indication: Anaphylactic reaction
     Dosage: ONE INJECTION AS NEEDED; CAN USE UP TO 2X/DAY AS NEEDED
     Route: 058
     Dates: start: 1999
  17. EPINEPHRINE [Concomitant]
     Active Substance: EPINEPHRINE
     Indication: Hypersensitivity
  18. MIDODRINE [Concomitant]
     Active Substance: MIDODRINE
     Indication: Postural orthostatic tachycardia syndrome
     Dosage: UP TO 2X /DAY AS NEEDED
     Route: 048
     Dates: start: 2023
  19. PHENERGAN [Concomitant]
     Active Substance: PROMETHAZINE HYDROCHLORIDE
     Indication: Impaired gastric emptying
     Route: 048
     Dates: start: 202404
  20. PHENERGAN [Concomitant]
     Active Substance: PROMETHAZINE HYDROCHLORIDE
     Indication: Hiatus hernia

REACTIONS (5)
  - Postural orthostatic tachycardia syndrome [Recovered/Resolved]
  - Anaphylactic reaction [Recovered/Resolved]
  - Hiatus hernia [Not Recovered/Not Resolved]
  - Bradycardia [Recovered/Resolved]
  - Food allergy [Recovered/Resolved]

NARRATIVE: CASE EVENT DATE: 20240401
